FAERS Safety Report 19294959 (Version 1)
Quarter: 2021Q2

REPORT INFORMATION
  Report Type: Other
  Country: NL (occurrence: FR)
  Receive Date: 20210524
  Receipt Date: 20210524
  Transmission Date: 20210717
  Serious: No
  Sender: FDA-Public Use
  Company Number: NL-SIEMENS HEALTHCARE LIMITED-PET-000021-2020

PATIENT
  Age: 81 Year
  Sex: Female
  Weight: 59 kg

DRUGS (1)
  1. FLUORODEOXYGLUCOSE 18F [Suspect]
     Active Substance: FLUDEOXYGLUCOSE F-18
     Indication: POSITRON EMISSION TOMOGRAM
     Dosage: UNK
     Route: 042
     Dates: start: 20200420, end: 20200420

REACTIONS (2)
  - Injection site extravasation [Recovered/Resolved]
  - Localised oedema [Recovered/Resolved]

NARRATIVE: CASE EVENT DATE: 20200420
